FAERS Safety Report 11057920 (Version 1)
Quarter: 2015Q2

REPORT INFORMATION
  Report Type: Spontaneous
  Country: TR (occurrence: TR)
  Receive Date: 20150423
  Receipt Date: 20150423
  Transmission Date: 20150821
  Serious: Yes (Other)
  Sender: FDA-Public Use
  Company Number: TR-SUN PHARMACEUTICAL INDUSTRIES LTD-2015RR-95941

PATIENT
  Age: 10 Year
  Sex: Male

DRUGS (2)
  1. RISPERIDONE. [Suspect]
     Active Substance: RISPERIDONE
     Indication: ABNORMAL BEHAVIOUR
     Dosage: 4 MG, DAILY
     Route: 065
  2. METHYLPHENDIATE [Concomitant]
     Indication: ABNORMAL BEHAVIOUR
     Dosage: 36 MG, DAILY
     Route: 065

REACTIONS (2)
  - Incorrect dose administered [Recovered/Resolved]
  - Dystonia [Recovered/Resolved]
